FAERS Safety Report 5174736-1 (Version None)
Quarter: 2006Q4

REPORT INFORMATION
  Report Type: 
  Country: None (occurrence: None)
  Receive Date: 20061206
  Receipt Date: 20061123
  Transmission Date: 20070319
  Serious: Yes (Hospitalization, Other)
  Sender: FDA-Public Use
  Company Number: 2006132962

PATIENT
  Age: 66 Year
  Sex: Male
  Weight: 83 kg

DRUGS (4)
  1. SUTENT [Suspect]
     Indication: RENAL CELL CARCINOMA STAGE UNSPECIFIED
     Dosage: 50 MG (50 MG, 1 IN 1 D), ORAL
     Route: 048
     Dates: start: 20061020
  2. ALLOPURINOL [Concomitant]
  3. METFORMIN HCL [Concomitant]
  4. ACETYLSALICYLATE LYSINE (ACETYLSALICYLATE LYSINE) [Concomitant]

REACTIONS (14)
  - ABDOMINAL PAIN [None]
  - BILE DUCT OBSTRUCTION [None]
  - BLOOD ALBUMIN DECREASED [None]
  - BLOOD CHLORIDE DECREASED [None]
  - CHOLANGITIS [None]
  - CORONARY ARTERY STENOSIS [None]
  - ELECTROCARDIOGRAM REPOLARISATION ABNORMALITY [None]
  - HAEMATOCRIT DECREASED [None]
  - HAEMOGLOBIN DECREASED [None]
  - HYPERTHERMIA [None]
  - MEAN CELL VOLUME ABNORMAL [None]
  - PAIN [None]
  - PLATELET COUNT INCREASED [None]
  - RED BLOOD CELL COUNT DECREASED [None]
